FAERS Safety Report 19003970 (Version 1)
Quarter: 2021Q1

REPORT INFORMATION
  Report Type: Spontaneous
  Country: US (occurrence: US)
  Receive Date: 20210313
  Receipt Date: 20210313
  Transmission Date: 20210420
  Serious: No
  Sender: FDA-Public Use
  Company Number: US-VISTAPHARM, INC.-VER202007-001201

PATIENT
  Sex: Female

DRUGS (1)
  1. HYDROCODONE AND ACETAMINOPHEN [Suspect]
     Active Substance: ACETAMINOPHEN\HYDROCODONE
     Indication: PAIN IN EXTREMITY
     Dosage: 7.5 MG/ 325 MG PER 15 ML
     Route: 048

REACTIONS (3)
  - Product packaging quantity issue [Unknown]
  - Pain in extremity [Unknown]
  - Incorrect product administration duration [Unknown]
